FAERS Safety Report 4647265-9 (Version None)
Quarter: 2005Q2

REPORT INFORMATION
  Report Type: 
  Country: None (occurrence: None)
  Receive Date: 20050428
  Receipt Date: 20050422
  Transmission Date: 20051028
  Serious: Yes (Hospitalization)
  Sender: FDA-Public Use
  Company Number: 200511426FR

PATIENT
  Age: 60 Year
  Sex: Male
  Weight: 58 kg

DRUGS (9)
  1. CLAFORAN [Suspect]
     Route: 042
     Dates: start: 20050221, end: 20050404
  2. TAVANIC [Suspect]
     Route: 042
     Dates: start: 20050223, end: 20050304
  3. CYMEVAN [Concomitant]
  4. MOPRAL [Concomitant]
  5. LOVENOX [Concomitant]
  6. ACUPAN [Concomitant]
  7. CORTANCYL [Concomitant]
  8. CANCIDAS [Concomitant]
  9. ULTIVA [Concomitant]

REACTIONS (5)
  - CLONIC CONVULSION [None]
  - CONVULSION [None]
  - GLASGOW COMA SCALE ABNORMAL [None]
  - HYPERTONIA [None]
  - PALLOR [None]
